FAERS Safety Report 11895140 (Version 3)
Quarter: 2016Q2

REPORT INFORMATION
  Report Type: Spontaneous
  Country: US (occurrence: US)
  Receive Date: 20160107
  Receipt Date: 20160620
  Transmission Date: 20160815
  Serious: Yes (Hospitalization, Other)
  Sender: FDA-Public Use
  Company Number: US-PFIZER INC-2015450702

PATIENT
  Age: 77 Year
  Sex: Male

DRUGS (23)
  1. LEFLUNOMIDE. [Concomitant]
     Active Substance: LEFLUNOMIDE
     Dosage: 20 MG, DAILY, NOON
  2. OXYGEN. [Concomitant]
     Active Substance: OXYGEN
     Dosage: 2 UNITS (TIME TO BE TAKEN: 24/7)
  3. PREDNISONE. [Concomitant]
     Active Substance: PREDNISONE
     Dosage: 5 MG, DAILY AM
     Dates: start: 20160124
  4. TRAMADOL HCL [Concomitant]
     Active Substance: TRAMADOL HYDROCHLORIDE
     Dosage: 50 MG (5 TO 6 TIMES PER DAY) AM/NOON/PM
  5. IPRATROPIUM BROMIDE/ALBUTEROL SULFATE [Concomitant]
     Active Substance: ALBUTEROL SULFATE\IPRATROPIUM BROMIDE
     Dosage: IPRATROPIUM BROMIDE 0.05MG/ ALBUTEROL SULFATE 0.03MG INHALATION 3 TIMES DAILY AM/PM
     Route: 055
  6. CALCIUM WITH VITAMIN D [Concomitant]
     Active Substance: CALCIUM\VITAMIN D
     Dosage: 600 MG, 2X/DAY AM/PM
  7. BACTROBAN [Concomitant]
     Active Substance: MUPIROCIN\MUPIROCIN CALCIUM
     Dosage: 2%, 2X/DAY AM/PM
  8. SYMBICORT [Concomitant]
     Active Substance: BUDESONIDE\FORMOTEROL FUMARATE DIHYDRATE
     Dosage: 160/4 .5 MCG (120 INH) 200 MG, 2X/DAY
  9. ALBUTEROL. [Concomitant]
     Active Substance: ALBUTEROL
     Dosage: INHALATION AEROSOL AT 2 PUFFS AS NEEDED
     Route: 055
  10. DILTIAZEM [Concomitant]
     Active Substance: DILTIAZEM
     Dosage: 60 MG 3X/DAY (1 EVERY 8 HOURS)
  11. VITAMIIN C [Concomitant]
     Active Substance: ASCORBIC ACID
     Dosage: 500 MG, DAILY, AM
  12. XELJANZ [Suspect]
     Active Substance: TOFACITINIB CITRATE
     Indication: RHEUMATOID ARTHRITIS
     Dosage: 5 MG, 2X/DAY
     Dates: end: 20160315
  13. MIACALCIN [Concomitant]
     Active Substance: CALCITONIN SALMON
     Dosage: (200/ACT SPR APO) AT ONCE DAILY NOON
  14. ISOSORBIDE. [Concomitant]
     Active Substance: ISOSORBIDE
     Dosage: 120 MG, DAILY, AM
  15. PROTONIX [Concomitant]
     Active Substance: PANTOPRAZOLE SODIUM
     Indication: HAEMORRHAGE
     Dosage: 40 MG, DAILY, AM
  16. ASPIRIN. [Concomitant]
     Active Substance: ASPIRIN
     Dosage: 81 MG, 2X/DAY, AM/PM
  17. XARELTO [Concomitant]
     Active Substance: RIVAROXABAN
     Dosage: 250 MG
  18. CETIRIZINE [Concomitant]
     Active Substance: CETIRIZINE HYDROCHLORIDE
     Dosage: 10 MG, DAILY, NOON
  19. NITROGLYCERIN. [Concomitant]
     Active Substance: NITROGLYCERIN
     Dosage: 0.4 MG, AS NEEDED (15 MINUTES APART)
  20. SPIRIVA [Concomitant]
     Active Substance: TIOTROPIUM BROMIDE MONOHYDRATE
     Dosage: HANDIHALR 1 PUFF DAILY PM
  21. FERROUS SULFATE. [Concomitant]
     Active Substance: FERROUS SULFATE
     Dosage: 325 MG, 2X/DAY AM/PM
  22. LEVOTHYROXINE. [Concomitant]
     Active Substance: LEVOTHYROXINE
     Dosage: 50 UG, DAILY, PM
  23. LOSARTAN. [Concomitant]
     Active Substance: LOSARTAN
     Dosage: (3 X 25MG EACH) 75 MG, DAILY
     Dates: start: 20151219

REACTIONS (6)
  - Hypotension [Recovered/Resolved]
  - Blood magnesium decreased [Recovered/Resolved]
  - Pneumonia [Recovered/Resolved]
  - Hypertension [Unknown]
  - Urinary tract infection [Recovered/Resolved]
  - Dehydration [Recovered/Resolved]

NARRATIVE: CASE EVENT DATE: 20160219
